FAERS Safety Report 10556602 (Version 4)
Quarter: 2015Q1

REPORT INFORMATION
  Report Type: Report from Study
  Country: BE (occurrence: BE)
  Receive Date: 20141031
  Receipt Date: 20150122
  Transmission Date: 20150720
  Serious: Yes (Hospitalization)
  Sender: FDA-Public Use
  Company Number: PHHO2014BE014307

PATIENT
  Age: 4 Year
  Sex: Female
  Weight: 16.1 kg

DRUGS (2)
  1. NO TREATMENT RECEIVED [Suspect]
     Active Substance: UNSPECIFIED INGREDIENT
     Indication: JUVENILE IDIOPATHIC ARTHRITIS
     Dosage: NO TREATMENT
     Route: 065
  2. ACZ885 [Suspect]
     Active Substance: CANAKINUMAB
     Indication: JUVENILE IDIOPATHIC ARTHRITIS
     Dosage: 4 MG/KG, UNK
     Route: 058
     Dates: start: 20121219

REACTIONS (3)
  - Cellulitis [Recovered/Resolved]
  - Lymphangitis [Recovered/Resolved]
  - Lymphadenitis bacterial [Recovered/Resolved]

NARRATIVE: CASE EVENT DATE: 20141016
